FAERS Safety Report 6669093-5 (Version None)
Quarter: 2010Q2

REPORT INFORMATION
  Report Type: 
  Country: None (occurrence: None)
  Receive Date: 20100406
  Receipt Date: 20100325
  Transmission Date: 20101027
  Serious: Yes (Hospitalization)
  Sender: FDA-Public Use
  Company Number: FR-SANOFI-AVENTIS-2010SA017142

PATIENT
  Age: 80 Year
  Sex: Male

DRUGS (6)
  1. LASIX [Suspect]
     Indication: ATRIAL FIBRILLATION
     Route: 048
     Dates: start: 20090922, end: 20091002
  2. IMOVANE [Suspect]
     Indication: INSOMNIA
     Route: 048
     Dates: start: 20090922
  3. THERALENE [Suspect]
     Indication: AGITATION
     Route: 048
     Dates: start: 20090922, end: 20091001
  4. LANSOPRAZOLE [Suspect]
     Indication: DRUG USE FOR UNKNOWN INDICATION
     Route: 048
     Dates: start: 20090922, end: 20091001
  5. TAREG [Suspect]
     Indication: ATRIAL FIBRILLATION
     Route: 048
     Dates: start: 20090922, end: 20091001
  6. COUMADIN [Suspect]
     Indication: ATRIAL FIBRILLATION
     Route: 048
     Dates: start: 20090922

REACTIONS (6)
  - CONDITION AGGRAVATED [None]
  - CONFUSIONAL STATE [None]
  - LEUKOPENIA [None]
  - LYMPHOPENIA [None]
  - NEUTROPENIA [None]
  - RENAL FAILURE ACUTE [None]
